FAERS Safety Report 15348701 (Version 2)
Quarter: 2018Q3

REPORT INFORMATION
  Report Type: Report from Study
  Country: US (occurrence: US)
  Receive Date: 20180904
  Receipt Date: 20180918
  Transmission Date: 20181010
  Serious: Yes (Hospitalization)
  Sender: FDA-Public Use
  Company Number: US-JNJFOC-20180841138

PATIENT
  Age: 12 Year
  Sex: Female

DRUGS (6)
  1. REMICADE [Suspect]
     Active Substance: INFLIXIMAB
     Indication: CROHN^S DISEASE
     Route: 042
     Dates: start: 20110728
  2. HYDROCORTISONE. [Concomitant]
     Active Substance: HYDROCORTISONE
     Route: 065
  3. BETHANECHOL [Concomitant]
     Active Substance: BETHANECHOL
     Route: 065
  4. LIDOCAINE AND PRILOCAINE [Concomitant]
     Active Substance: LIDOCAINE\PRILOCAINE
     Route: 065
  5. DUODERM HYDROACTIVE [Concomitant]
     Active Substance: CARBOXYMETHYLCELLULOSE SODIUM\PECTIN
     Route: 065
  6. PREVACID [Concomitant]
     Active Substance: LANSOPRAZOLE
     Route: 065

REACTIONS (1)
  - Abdominal migraine [Recovered/Resolved]

NARRATIVE: CASE EVENT DATE: 20180819
